FAERS Safety Report 4807196-8 (Version None)
Quarter: 2005Q4

REPORT INFORMATION
  Report Type: 
  Country: None (occurrence: None)
  Receive Date: 20051019
  Receipt Date: 20051003
  Transmission Date: 20060501
  Serious: Yes (Hospitalization)
  Sender: FDA-Public Use
  Company Number: 1999151018-FG

PATIENT
  Age: 8 Year
  Sex: Female

DRUGS (11)
  1. PROGRAF [Suspect]
     Indication: RENAL TRANSPLANT
     Dosage: , ORAL
     Route: 048
     Dates: start: 19961001
  2. JOSACINE (JOSAMYCIN) [Suspect]
     Dosage: UNK MG, UNKNOWN/D, ORAL
     Route: 048
     Dates: start: 19990213, end: 19990215
  3. BRONCHOKOD (CARBOCISTEINE) [Suspect]
     Dosage: UNK MG, UNKNOWN/D, ORAL
     Route: 048
     Dates: start: 19990213, end: 19990215
  4. AZATHIOPRINE [Concomitant]
  5. PREDNISONE [Concomitant]
  6. NITROXOLINE [Concomitant]
  7. CALCITRIOL [Concomitant]
  8. ACETAMINOPHEN [Concomitant]
  9. SACCHAROMYCES BOULARDII [Concomitant]
  10. CEFTRIAXONE [Concomitant]
  11. AMOXICILLIN [Concomitant]

REACTIONS (15)
  - ABDOMINAL PAIN [None]
  - ASTHENIA [None]
  - BLOOD AMYLASE INCREASED [None]
  - BLOOD CREATININE INCREASED [None]
  - COUGH [None]
  - DIARRHOEA [None]
  - DRUG INTERACTION [None]
  - HYPERTHERMIA [None]
  - IMMUNOSUPPRESSANT DRUG LEVEL INCREASED [None]
  - LIPASE INCREASED [None]
  - LUNG DISORDER [None]
  - NEPHROPATHY TOXIC [None]
  - OVERDOSE [None]
  - RHINITIS [None]
  - VOMITING [None]
